FAERS Safety Report 23980648 (Version 1)
Quarter: 2024Q2

REPORT INFORMATION
  Report Type: Report from Study
  Country: US (occurrence: US)
  Receive Date: 20240617
  Receipt Date: 20240617
  Transmission Date: 20240716
  Serious: No
  Sender: FDA-Public Use
  Company Number: US-ALXN-A202310001

PATIENT
  Sex: Male

DRUGS (1)
  1. SOLIRIS [Suspect]
     Active Substance: ECULIZUMAB
     Indication: Myasthenia gravis
     Dosage: UNK
     Route: 065

REACTIONS (8)
  - Feeling abnormal [Unknown]
  - Infusion site bruising [Unknown]
  - Diplopia [Not Recovered/Not Resolved]
  - Eyelid ptosis [Unknown]
  - Gait disturbance [Unknown]
  - Vascular device user [Unknown]
  - Headache [Unknown]
  - Fatigue [Unknown]
